FAERS Safety Report 20559437 (Version 1)
Quarter: 2022Q1

REPORT INFORMATION
  Report Type: Spontaneous
  Country: CA (occurrence: CA)
  Receive Date: 20220307
  Receipt Date: 20220307
  Transmission Date: 20220423
  Serious: Yes (Other)
  Sender: FDA-Public Use
  Company Number: CA-PFIZER INC-202200321995

PATIENT
  Age: 60 Year
  Sex: Male

DRUGS (4)
  1. SULFASALAZINE [Suspect]
     Active Substance: SULFASALAZINE
     Indication: Joint injury
     Dosage: 1 G, 2X/DAY
     Dates: start: 2016
  2. SULFASALAZINE [Suspect]
     Active Substance: SULFASALAZINE
     Indication: Arthralgia
     Dosage: 1.5 G, 2X/DAY
     Route: 048
  3. SULFASALAZINE [Suspect]
     Active Substance: SULFASALAZINE
     Indication: Pain in extremity
  4. PREDNISONE [Concomitant]
     Active Substance: PREDNISONE
     Dosage: 15 MG, DAILY, FOR 2 WEEKS, THEN 12.5MG FOR 2 WEEKS, THEN 10MG

REACTIONS (6)
  - C-reactive protein increased [Unknown]
  - Arthralgia [Unknown]
  - Pain in extremity [Unknown]
  - Tendonitis [Unknown]
  - Synovitis [Unknown]
  - Joint swelling [Unknown]

NARRATIVE: CASE EVENT DATE: 20210101
